FAERS Safety Report 9965331 (Version 1)
Quarter: 2014Q1

REPORT INFORMATION
  Report Type: Report from Study
  Country: US (occurrence: US)
  Receive Date: 20140305
  Receipt Date: 20140305
  Transmission Date: 20141002
  Serious: No
  Sender: FDA-Public Use
  Company Number: US-ABBVIE-13P-163-1126344-00

PATIENT
  Sex: Female

DRUGS (6)
  1. HUMIRA [Suspect]
     Indication: CROHN^S DISEASE
     Dates: start: 20130104
  2. NORCO [Suspect]
     Indication: ABDOMINAL PAIN
  3. TRAMADOL [Suspect]
     Indication: ABDOMINAL PAIN
  4. XANAX [Concomitant]
     Indication: PRODUCT USED FOR UNKNOWN INDICATION
     Dosage: EVERY NIGHT
     Route: 048
  5. MANY MULTIVITAMIN(S) [Concomitant]
     Indication: PRODUCT USED FOR UNKNOWN INDICATION
  6. PROAIR [Concomitant]
     Indication: ASTHMA
     Dosage: 2 PUFFS AS NEEDED

REACTIONS (9)
  - Asthenia [Not Recovered/Not Resolved]
  - Crohn^s disease [Not Recovered/Not Resolved]
  - Fall [Not Recovered/Not Resolved]
  - Upper limb fracture [Not Recovered/Not Resolved]
  - Diarrhoea [Not Recovered/Not Resolved]
  - Weight increased [Recovered/Resolved]
  - Weight decreased [Not Recovered/Not Resolved]
  - Abdominal pain [Not Recovered/Not Resolved]
  - Vomiting [Not Recovered/Not Resolved]
